FAERS Safety Report 9568688 (Version 1)
Quarter: 2013Q3

REPORT INFORMATION
  Report Type: Spontaneous
  Country: US (occurrence: US)
  Receive Date: 20130930
  Receipt Date: 20130930
  Transmission Date: 20140515
  Serious: No
  Sender: FDA-Public Use
  Company Number: US-AMGEN-USASP2013062208

PATIENT
  Age: 53 Year
  Sex: Female
  Weight: 113.38 kg

DRUGS (9)
  1. ENBREL [Suspect]
     Indication: PRODUCT USED FOR UNKNOWN INDICATION
     Dosage: 50 MG, 2 TIMES/WK
     Route: 058
  2. VICODIN [Concomitant]
     Dosage: UNK, 5-500 MG
  3. NORVASC [Concomitant]
     Dosage: 2.5 MG, UNK
  4. LYRICA [Concomitant]
     Dosage: 25 MG, UNK
  5. SOMA [Concomitant]
     Dosage: 350 MG, UNK
  6. NAPROSYN                           /00256201/ [Concomitant]
     Dosage: 250 MG, UNK
  7. PROTONIX [Concomitant]
     Dosage: 20 MG, UNK
  8. EFFEXOR [Concomitant]
     Dosage: 50 MG, UNK
  9. METFORMIN [Concomitant]
     Dosage: 500 MG, UNK

REACTIONS (1)
  - Erythema [Unknown]
